FAERS Safety Report 19188150 (Version 1)
Quarter: 2021Q2

REPORT INFORMATION
  Report Type: Spontaneous
  Country: CA (occurrence: CA)
  Receive Date: 20210428
  Receipt Date: 20210428
  Transmission Date: 20210717
  Serious: Yes (Other)
  Sender: FDA-Public Use
  Company Number: CA-BIOVITRUM-2021CA3899

PATIENT
  Age: 11 Year
  Sex: Male

DRUGS (5)
  1. ANAKINRA [Suspect]
     Active Substance: ANAKINRA
     Indication: PRODUCT USED FOR UNKNOWN INDICATION
     Route: 065
  2. ANAKINRA [Suspect]
     Active Substance: ANAKINRA
     Route: 065
  3. ILARIS [Suspect]
     Active Substance: CANAKINUMAB
     Indication: CHRONIC INFANTILE NEUROLOGICAL CUTANEOUS AND ARTICULAR SYNDROME
     Route: 058
  4. ILARIS [Suspect]
     Active Substance: CANAKINUMAB
     Route: 058
  5. COLCHICINE. [Suspect]
     Active Substance: COLCHICINE
     Indication: PRODUCT USED FOR UNKNOWN INDICATION
     Route: 065

REACTIONS (25)
  - Conjunctivitis [Unknown]
  - Inflammatory marker increased [Unknown]
  - Joint swelling [Unknown]
  - Malaise [Unknown]
  - Pain [Unknown]
  - Mouth ulceration [Unknown]
  - Deafness [Unknown]
  - Intracranial pressure increased [Unknown]
  - Rash [Unknown]
  - Drug ineffective [Unknown]
  - Incorrect dose administered [Unknown]
  - Nausea [Unknown]
  - Chronic infantile neurological cutaneous and articular syndrome [Unknown]
  - Drug intolerance [Unknown]
  - Arthralgia [Unknown]
  - Uveitis [Unknown]
  - Gene mutation [Unknown]
  - Neurological symptom [Unknown]
  - Pyrexia [Unknown]
  - Serum amyloid A protein increased [Unknown]
  - Headache [Unknown]
  - Brain injury [Unknown]
  - Condition aggravated [Unknown]
  - Fatigue [Unknown]
  - Withdrawal syndrome [Unknown]
